FAERS Safety Report 10141281 (Version 2)
Quarter: 2014Q2

REPORT INFORMATION
  Report Type: Spontaneous
  Country: US (occurrence: US)
  Receive Date: 20140429
  Receipt Date: 20140506
  Transmission Date: 20141212
  Serious: No
  Sender: FDA-Public Use
  Company Number: US-SHIRE-US201401537

PATIENT
  Age: 20 Year
  Sex: Female
  Weight: 68.27 kg

DRUGS (4)
  1. LIALDA [Suspect]
     Indication: COLITIS ULCERATIVE
     Dosage: 1.2 G, 2X/DAY:BID (TWICE DAILY)
     Route: 048
     Dates: start: 2013
  2. LIALDA [Suspect]
     Dosage: 1.2 G, 4X/DAY:QID
     Route: 048
     Dates: start: 201209, end: 2013
  3. LIALDA [Suspect]
     Dosage: 1.2 G, 3X/DAY:TID
     Route: 048
     Dates: start: 2013, end: 2013
  4. LIALDA [Suspect]
     Dosage: 2.4 G, 2X/DAY:BID
     Route: 048
     Dates: start: 20140414

REACTIONS (3)
  - Condition aggravated [Not Recovered/Not Resolved]
  - Product quality issue [Not Recovered/Not Resolved]
  - Drug prescribing error [Not Recovered/Not Resolved]
